FAERS Safety Report 16458411 (Version 1)
Quarter: 2019Q2

REPORT INFORMATION
  Report Type: Spontaneous
  Country: US (occurrence: US)
  Receive Date: 20190620
  Receipt Date: 20190620
  Transmission Date: 20190711
  Serious: No
  Sender: FDA-Public Use
  Company Number: US-THERAPEUTICSMD-2019TMD00263

PATIENT
  Sex: Female

DRUGS (2)
  1. IMVEXXY [Suspect]
     Active Substance: ESTRADIOL
     Dosage: 4 ?G, 1X/DAY
     Route: 067
  2. IMVEXXY [Suspect]
     Active Substance: ESTRADIOL
     Dosage: 4 ?G, 2X/WEEK
     Route: 067
     Dates: end: 201902

REACTIONS (3)
  - Vaginal haemorrhage [Unknown]
  - Intentional product misuse [Recovered/Resolved]
  - Product use complaint [Recovered/Resolved]
